FAERS Safety Report 4905873-1 (Version None)
Quarter: 2006Q1

REPORT INFORMATION
  Report Type: 
  Country: None (occurrence: None)
  Receive Date: 20060113
  Receipt Date: 20050921
  Transmission Date: 20060701
  Serious: No
  Sender: FDA-Public Use
  Company Number: 2005SP002805

PATIENT
  Age: 50 Year
  Sex: Male
  Weight: 81.1939 kg

DRUGS (2)
  1. LUNESTA [Suspect]
     Indication: INSOMNIA
     Dosage: 3 MG
  2. INFLAMMATORY DRUG [Concomitant]

REACTIONS (1)
  - DYSGEUSIA [None]
